FAERS Safety Report 11262824 (Version 1)
Quarter: 2015Q3

REPORT INFORMATION
  Report Type: Spontaneous
  Country: US (occurrence: US)
  Receive Date: 20150710
  Receipt Date: 20150710
  Transmission Date: 20151125
  Serious: Yes (Other)
  Sender: FDA-Public Use
  Company Number: US-TAKEDA-2015MPI004582

PATIENT

DRUGS (3)
  1. DOXORUBICIN [Suspect]
     Active Substance: DOXORUBICIN
     Indication: NEUROBLASTOMA
     Dosage: 30 MG/M2, UNK
     Route: 042
  2. SORAFENIB [Suspect]
     Active Substance: SORAFENIB
     Indication: NEUROBLASTOMA
     Dosage: 150 MG/M2, BID
     Route: 065
  3. VELCADE [Suspect]
     Active Substance: BORTEZOMIB
     Indication: NEUROBLASTOMA
     Dosage: 1.3 MG/M2, UNK
     Route: 065

REACTIONS (7)
  - Constipation [Unknown]
  - Hypoalbuminaemia [Unknown]
  - Product use issue [Unknown]
  - Nausea [Unknown]
  - Thrombocytopenia [Unknown]
  - Dehydration [Unknown]
  - Hypophosphataemia [Unknown]
